FAERS Safety Report 16909278 (Version 6)
Quarter: 2022Q2

REPORT INFORMATION
  Report Type: Report from Study
  Country: FR (occurrence: FR)
  Receive Date: 20191011
  Receipt Date: 20220606
  Transmission Date: 20220721
  Serious: Yes (Death, Life-Threatening, Hospitalization, Other)
  Sender: FDA-Public Use
  Company Number: FR-PFIZER INC-2019436066

PATIENT
  Age: 80 Year
  Sex: Female
  Weight: 66 kg

DRUGS (14)
  1. TALAZOPARIB [Suspect]
     Active Substance: TALAZOPARIB
     Indication: Breast cancer
     Dosage: 0.75 MG, DAILY
     Route: 048
     Dates: start: 20181204
  2. TALAZOPARIB [Suspect]
     Active Substance: TALAZOPARIB
     Dosage: 0.5 MG, DAILY
     Route: 048
     Dates: start: 20190704, end: 20190806
  3. TALAZOPARIB [Suspect]
     Active Substance: TALAZOPARIB
     Dosage: 0.5 MG, DAILY
     Route: 048
     Dates: end: 20190813
  4. OXYCODONE HYDROCHLORIDE [Concomitant]
     Active Substance: OXYCODONE HYDROCHLORIDE
     Indication: Pain
     Dosage: 5 MG, EVERY 4 HRS IF PAIN
     Dates: start: 20190813
  5. FLUOXETINE [Concomitant]
     Active Substance: FLUOXETINE HYDROCHLORIDE
     Indication: Depression
     Dosage: 20 MG, DAILY
     Route: 048
     Dates: start: 20190813
  6. POTASSIUM CHLORIDE [Concomitant]
     Active Substance: POTASSIUM CHLORIDE
     Indication: Hypokalaemia
     Dosage: 3 DF, DAILY (THREE DOSES OF 600 PER DAY )
     Route: 048
     Dates: start: 20190813
  7. EUPANTOL [Concomitant]
     Active Substance: PANTOPRAZOLE SODIUM
     Indication: Gastrooesophageal reflux disease
     Dosage: 20 MG, DAILY
     Dates: start: 20190813
  8. BENSERAZIDE HYDROCHLORIDE\LEVODOPA [Concomitant]
     Active Substance: BENSERAZIDE HYDROCHLORIDE\LEVODOPA
     Dosage: 1 DF, 3X/DAY
  9. ZOLPIDEM TARTRATE [Concomitant]
     Active Substance: ZOLPIDEM TARTRATE
     Dosage: 15 MG, DAILY
  10. ALPRAZOLAM [Concomitant]
     Active Substance: ALPRAZOLAM
     Indication: Anxiety
     Dosage: 0.25 MG, 1X/DAY IN EVENING
     Route: 048
  11. ATENOLOL [Concomitant]
     Active Substance: ATENOLOL
     Indication: Coronary artery insufficiency
     Dosage: 50 MG, 1X/DAY
     Route: 048
  12. LERCANIDIPINE [Concomitant]
     Active Substance: LERCANIDIPINE
     Dosage: 10 MG, 1X/DAY
  13. PIPERACILLIN SODIUM\TAZOBACTAM SODIUM [Concomitant]
     Active Substance: PIPERACILLIN SODIUM\TAZOBACTAM SODIUM
     Dosage: 4 G, 3X/DAY
     Route: 042
  14. DAFALGAN CODEINE [Concomitant]
     Active Substance: ACETAMINOPHEN\CODEINE PHOSPHATE
     Indication: Pain
     Dosage: 1 TO 2 TABLETS, 3X/DAY
     Route: 048

REACTIONS (24)
  - Respiratory distress [Fatal]
  - Septic shock [Fatal]
  - Thrombotic microangiopathy [Fatal]
  - Second primary malignancy [Fatal]
  - Leukaemia [Fatal]
  - Myelodysplastic syndrome [Fatal]
  - Neoplasm progression [Fatal]
  - Thrombocytopenia [Unknown]
  - Anaemia [Unknown]
  - Hypokalaemia [Unknown]
  - Haemoglobin decreased [Unknown]
  - White blood cell count decreased [Unknown]
  - Asthenia [Unknown]
  - Extrapyramidal disorder [Unknown]
  - Neuralgia [Unknown]
  - Motor dysfunction [Unknown]
  - Haematoma [Unknown]
  - Back pain [Unknown]
  - Psychomotor skills impaired [Unknown]
  - Disorientation [Unknown]
  - Dyspnoea [Unknown]
  - C-reactive protein increased [Unknown]
  - Urinary tract infection [Unknown]
  - Leukocytosis [Unknown]

NARRATIVE: CASE EVENT DATE: 20190801
